FAERS Safety Report 4380838-X (Version None)
Quarter: 2004Q2

REPORT INFORMATION
  Report Type: 
  Country: None (occurrence: None)
  Receive Date: 20040616
  Receipt Date: 20040608
  Transmission Date: 20050107
  Serious: Yes (Disabling)
  Sender: FDA-Public Use
  Company Number: 200410388BNE

PATIENT
  Age: 40 Year
  Sex: Female

DRUGS (1)
  1. CIPROFLOXACIN [Suspect]
     Indication: EAR INFECTION
     Dosage: 250 MG, BID ORAL
     Route: 048
     Dates: start: 20040520, end: 20040526

REACTIONS (2)
  - MUSCLE RUPTURE [None]
  - MYALGIA [None]
